FAERS Safety Report 24239428 (Version 2)
Quarter: 2024Q4

REPORT INFORMATION
  Report Type: Spontaneous
  Country: US (occurrence: US)
  Receive Date: 20240822
  Receipt Date: 20241125
  Transmission Date: 20250115
  Serious: No
  Sender: AVADEL CNS PHARMACEUTICALS, LLC
  Company Number: US-AVADEL CNS PHARMACEUTICALS, LLC-2024AVA01132

PATIENT
  Sex: Female
  Weight: 54.422 kg

DRUGS (14)
  1. LUMRYZ [Suspect]
     Active Substance: SODIUM OXYBATE
     Indication: Narcolepsy
     Dosage: 4.5 G, ONCE NIGHTLY
     Route: 048
     Dates: start: 20240620, end: 2024
  2. LUMRYZ [Suspect]
     Active Substance: SODIUM OXYBATE
     Indication: Cataplexy
  3. LUMRYZ [Suspect]
     Active Substance: SODIUM OXYBATE
     Indication: Narcolepsy
     Dosage: 6 G, ONCE NIGHTLY
     Dates: start: 2024, end: 2024
  4. LUMRYZ [Suspect]
     Active Substance: SODIUM OXYBATE
     Indication: Cataplexy
  5. LUMRYZ [Suspect]
     Active Substance: SODIUM OXYBATE
     Indication: Narcolepsy
     Dosage: 7.5 G, ONCE NIGHTLY
     Route: 048
     Dates: start: 2024
  6. LUMRYZ [Suspect]
     Active Substance: SODIUM OXYBATE
     Indication: Cataplexy
  7. SUNOSI [Concomitant]
     Active Substance: SOLRIAMFETOL
     Dosage: 150 MG, ONCE DAILY IN THE MORNING
  8. EVEKEO [Concomitant]
     Active Substance: AMPHETAMINE SULFATE
     Dosage: 10 MG, AS NEEDED THROUGHOUT THE DAY, USUALLY TAKES A MAXIMUM OF 2 DOSES PER DAY
  9. DULOXETINE [Concomitant]
     Active Substance: DULOXETINE
     Dosage: 40 MG, ONCE DAILY
  10. VITAMIN C [Concomitant]
     Active Substance: ASCORBIC ACID
     Dosage: 500 MG 2-3 TIMES PER WEEK
  11. IRON [Concomitant]
     Active Substance: IRON
     Dosage: 65 MG, 3 TIMES PER WEEK
  12. MAGNESIUM GLYCINATE [Concomitant]
     Active Substance: MAGNESIUM GLYCINATE
     Dosage: 500 MG, ONCE DAILY
  13. MENAQUINONE 6 [Concomitant]
     Active Substance: MENAQUINONE 6
     Dosage: 500 MCG, ONCE DAILY
  14. ALCOHOL [Concomitant]
     Active Substance: ALCOHOL

REACTIONS (4)
  - Nausea [Recovered/Resolved]
  - Somnolence [Not Recovered/Not Resolved]
  - Vomiting [Recovered/Resolved]
  - Intentional dose omission [Unknown]

NARRATIVE: CASE EVENT DATE: 20240101
